FAERS Safety Report 4662120-6 (Version None)
Quarter: 2005Q2

REPORT INFORMATION
  Report Type: 
  Country: None (occurrence: None)
  Receive Date: 20050512
  Receipt Date: 20050429
  Transmission Date: 20051028
  Serious: Yes (Other)
  Sender: FDA-Public Use
  Company Number: 2005037417

PATIENT
  Age: 16 Year
  Sex: Female

DRUGS (1)
  1. DEPO-PROVERA [Suspect]
     Indication: CONTRACEPTION
     Dosage: 1ST INJECTION
     Dates: start: 20010501, end: 20010501

REACTIONS (7)
  - BENIGN INTRACRANIAL HYPERTENSION [None]
  - DEHYDRATION [None]
  - INTRACRANIAL VENOUS SINUS THROMBOSIS [None]
  - PAPILLOEDEMA [None]
  - PSEUDOBULBAR PALSY [None]
  - VAGINAL HAEMORRHAGE [None]
  - WEIGHT DECREASED [None]
